FAERS Safety Report 8335194-9 (Version None)
Quarter: 2012Q2

REPORT INFORMATION
  Report Type: 
  Country: None (occurrence: None)
  Receive Date: 20120503
  Receipt Date: 20120427
  Transmission Date: 20120825
  Serious: Yes (Hospitalization, Other)
  Sender: FDA-Public Use
  Company Number: US-TEVA-317332USA

PATIENT
  Sex: Female

DRUGS (8)
  1. PROPRANOLOL HYDROCHLORIDE [Concomitant]
  2. ESCITALOPRAM OXALATE [Concomitant]
  3. MULTI-VITAMINS [Concomitant]
  4. COPAXONE [Suspect]
     Indication: MULTIPLE SCLEROSIS
     Route: 058
     Dates: start: 20070101
  5. IV STEROIDS [Suspect]
  6. TOLTERODINE TARTRATE [Concomitant]
  7. IMIPRAMINE [Concomitant]
  8. CLONAZEPAM [Concomitant]

REACTIONS (2)
  - MULTIPLE SCLEROSIS RELAPSE [None]
  - PSYCHOTIC DISORDER [None]
